FAERS Safety Report 21687857 (Version 2)
Quarter: 2025Q3

REPORT INFORMATION
  Report Type: Spontaneous
  Country: GB (occurrence: GB)
  Receive Date: 20221206
  Receipt Date: 20250829
  Transmission Date: 20251021
  Serious: Yes (Death)
  Sender: ORGANON
  Company Number: GB-MLMSERVICE-20221125-3943451-1

PATIENT
  Age: 44 Year
  Sex: Male

DRUGS (10)
  1. MIRTAZAPINE [Suspect]
     Active Substance: MIRTAZAPINE
     Route: 048
  2. XANAX [Suspect]
     Active Substance: ALPRAZOLAM
     Route: 048
  3. METHADONE [Suspect]
     Active Substance: METHADONE HYDROCHLORIDE
  4. PREGABALIN [Suspect]
     Active Substance: PREGABALIN
  5. BENZOYLECGONINE [Suspect]
     Active Substance: BENZOYLECGONINE
  6. DIAZEPAM [Suspect]
     Active Substance: DIAZEPAM
  7. MORPHINE [Suspect]
     Active Substance: MORPHINE
  8. GABAPENTIN [Suspect]
     Active Substance: GABAPENTIN
  9. MIDOMAFETAMINE [Suspect]
     Active Substance: MIDOMAFETAMINE
  10. TENAMFETAMINE [Suspect]
     Active Substance: TENAMFETAMINE

REACTIONS (1)
  - Toxicity to various agents [Fatal]
